FAERS Safety Report 8756581 (Version 3)
Quarter: 2015Q2

REPORT INFORMATION
  Report Type: Spontaneous
  Country: GB (occurrence: None)
  Receive Date: 20120814
  Receipt Date: 20150413
  Transmission Date: 20150821
  Serious: Yes (Death, Hospitalization)
  Sender: FDA-Public Use
  Company Number: UTC-021672

PATIENT
  Age: 31 Year
  Sex: Female

DRUGS (8)
  1. ESOMEPRAZOLE [Concomitant]
     Active Substance: ESOMEPRAZOLE
  2. IMPLANON (ETONOGESTREL) [Concomitant]
  3. AMILORIDE [Concomitant]
     Active Substance: AMILORIDE
  4. CERAZETTE (DESOGESTREL) [Concomitant]
  5. REMODULIN [Suspect]
     Active Substance: TREPROSTINIL
     Indication: PRODUCT USED FOR UNKNOWN INDICATION
     Dosage: CONTINUING
     Route: 058
     Dates: start: 20071206
  6. SILDENAFIL. [Concomitant]
     Active Substance: SILDENAFIL
  7. BUMETANIDE. [Concomitant]
     Active Substance: BUMETANIDE
  8. BOSENTAN [Concomitant]
     Active Substance: BOSENTAN\BOSENTAN MONOHYDRATE

REACTIONS (13)
  - Sepsis [None]
  - Multi-organ failure [None]
  - Cardiac arrest [None]
  - Sudden cardiac death [None]
  - Acidosis [None]
  - Hepatic function abnormal [None]
  - Anuria [None]
  - Pulmonary hypertension [None]
  - Pulseless electrical activity [None]
  - Presyncope [None]
  - Somnolence [None]
  - Acne [None]
  - Renal impairment [None]

NARRATIVE: CASE EVENT DATE: 20120730
